FAERS Safety Report 6984504-3 (Version None)
Quarter: 2010Q3

REPORT INFORMATION
  Report Type: 
  Country: None (occurrence: None)
  Receive Date: 20100915
  Receipt Date: 20090410
  Transmission Date: 20110219
  Serious: Yes (Other)
  Sender: FDA-Public Use
  Company Number: IT-CELGENEUS-083-20785-08040281

PATIENT

DRUGS (8)
  1. THALOMID [Suspect]
     Indication: MULTIPLE MYELOMA
     Route: 048
  2. DEXAMETHASONE [Suspect]
     Indication: MULTIPLE MYELOMA
     Route: 065
  3. VELCADE [Suspect]
     Indication: MULTIPLE MYELOMA
     Route: 065
  4. MELPHALAN HYDROCHLORIDE [Suspect]
     Indication: MULTIPLE MYELOMA
     Route: 065
  5. PREDNISONE [Suspect]
     Indication: MULTIPLE MYELOMA
     Route: 065
  6. ENOXAPARIN SODIUM [Concomitant]
     Indication: PROPHYLAXIS
     Route: 065
  7. ASPIRIN [Concomitant]
     Indication: PROPHYLAXIS
     Route: 065
  8. WARFARIN SODIUM [Concomitant]
     Indication: PROPHYLAXIS
     Route: 065

REACTIONS (3)
  - CARDIOVASCULAR DISORDER [None]
  - EMBOLISM VENOUS [None]
  - HAEMORRHAGE [None]
